FAERS Safety Report 7837103-5 (Version None)
Quarter: 2011Q4

REPORT INFORMATION
  Report Type: 
  Country: None (occurrence: None)
  Receive Date: 20111024
  Receipt Date: 20110824
  Transmission Date: 20120403
  Serious: No
  Sender: FDA-Public Use
  Company Number: US-ABBOTT-11P-163-0849373-00

PATIENT
  Sex: Female
  Weight: 46.308 kg

DRUGS (3)
  1. METOPROLOL TARTRATE [Concomitant]
     Indication: TACHYCARDIA
     Dates: start: 20110201
  2. LUPRON DEPOT [Suspect]
     Indication: ENDOMETRIOSIS
     Dates: start: 20110501, end: 20110601
  3. LUPRON DEPOT [Suspect]
     Dates: start: 20110601

REACTIONS (2)
  - VOMITING [None]
  - NAUSEA [None]
